FAERS Safety Report 16999023 (Version 5)
Quarter: 2022Q1

REPORT INFORMATION
  Report Type: Report from Study
  Country: US (occurrence: US)
  Receive Date: 20191106
  Receipt Date: 20220224
  Transmission Date: 20220423
  Serious: Yes (Other)
  Sender: FDA-Public Use
  Company Number: US-TAKEDA-2018TUS023104

PATIENT
  Age: 60 Year
  Sex: Male
  Weight: 92 kg

DRUGS (4)
  1. PONATINIB [Suspect]
     Active Substance: PONATINIB
     Indication: Chronic myeloid leukaemia
     Dosage: 15 MILLIGRAM, QD
     Route: 048
     Dates: start: 20180621
  2. PONATINIB [Suspect]
     Active Substance: PONATINIB
     Dosage: 45 MILLIGRAM, QD
     Route: 048
     Dates: start: 201807, end: 20181127
  3. PONATINIB [Suspect]
     Active Substance: PONATINIB
     Dosage: 15 MILLIGRAM, QD
     Route: 048
     Dates: start: 201807
  4. PONATINIB [Suspect]
     Active Substance: PONATINIB
     Dosage: 15 MILLIGRAM, QD
     Route: 048

REACTIONS (27)
  - Tumour lysis syndrome [Unknown]
  - Hepatotoxicity [Recovered/Resolved]
  - Arterial occlusive disease [Unknown]
  - Erectile dysfunction [Unknown]
  - Chronic myeloid leukaemia [Unknown]
  - Type 2 diabetes mellitus [Unknown]
  - Gastroenteritis viral [Unknown]
  - Flatulence [Unknown]
  - Liver function test abnormal [Unknown]
  - Hepatic enzyme increased [Unknown]
  - Bone pain [Unknown]
  - Dry mouth [Unknown]
  - Arthralgia [Unknown]
  - Constipation [Unknown]
  - Haematocrit decreased [Recovered/Resolved]
  - Back pain [Unknown]
  - Myalgia [Unknown]
  - Haemoglobin decreased [Recovered/Resolved]
  - Headache [Unknown]
  - White blood cell count decreased [Recovered/Resolved]
  - Tonsillitis [Unknown]
  - Chromaturia [Unknown]
  - Pollakiuria [Unknown]
  - Contusion [Recovering/Resolving]
  - Prostatitis [Unknown]
  - Oral pain [Unknown]
  - Product dose omission issue [Unknown]

NARRATIVE: CASE EVENT DATE: 20181127
